FAERS Safety Report 7239593-8 (Version None)
Quarter: 2011Q1

REPORT INFORMATION
  Report Type: 
  Country: None (occurrence: None)
  Receive Date: 20110122
  Receipt Date: 20110110
  Transmission Date: 20110831
  Serious: Yes (Other)
  Sender: FDA-Public Use
  Company Number: DE-RANBAXY-2011RR-41085

PATIENT
  Age: 81 Year
  Sex: Male

DRUGS (1)
  1. SIMVA BASICS 10MG FILMTABLETTEN [Suspect]

REACTIONS (1)
  - HALLUCINATION [None]
